FAERS Safety Report 8336937-0 (Version None)
Quarter: 2012Q2

REPORT INFORMATION
  Report Type: 
  Country: None (occurrence: None)
  Receive Date: 20120504
  Receipt Date: 20120123
  Transmission Date: 20120825
  Serious: No
  Sender: FDA-Public Use
  Company Number: US-GLAXOSMITHKLINE-A0962712A

PATIENT
  Age: 82 Year
  Sex: Male

DRUGS (4)
  1. HORIZANT [Suspect]
     Indication: NEUROPATHY PERIPHERAL
     Dosage: 600MG PER DAY
     Route: 048
     Dates: start: 20120116
  2. NEURONTIN [Suspect]
     Indication: NEUROPATHY PERIPHERAL
     Dosage: 300MG PER DAY
     Route: 048
     Dates: start: 20090101, end: 20120117
  3. PREDNISONE [Concomitant]
  4. FLUDROCORTISONE ACETATE [Concomitant]

REACTIONS (1)
  - FATIGUE [None]
